FAERS Safety Report 25020446 (Version 1)
Quarter: 2025Q1

REPORT INFORMATION
  Report Type: Spontaneous
  Country: US (occurrence: US)
  Receive Date: 20250227
  Receipt Date: 20250227
  Transmission Date: 20250408
  Serious: No
  Sender: PRIMUS PHARMACEUTICALS
  Company Number: US-PRIMUS-2025-US-005094

PATIENT
  Age: 70 Year
  Sex: Female

DRUGS (6)
  1. SERNIVO [Suspect]
     Active Substance: BETAMETHASONE DIPROPIONATE
     Indication: Dermatitis
  2. VITAMIN D [Concomitant]
     Active Substance: VITAMIN D NOS
  3. DULOXETINE [Concomitant]
     Active Substance: DULOXETINE
  4. CYCLOBENZAPRINE [Concomitant]
     Active Substance: CYCLOBENZAPRINE
  5. CETIRIZINE [Concomitant]
     Active Substance: CETIRIZINE HYDROCHLORIDE
  6. METOPROLOL TARTRATE [Concomitant]
     Active Substance: METOPROLOL TARTRATE

REACTIONS (2)
  - Application site pruritus [Unknown]
  - Off label use [Unknown]
